FAERS Safety Report 8427518-9 (Version None)
Quarter: 2012Q2

REPORT INFORMATION
  Report Type: 
  Country: None (occurrence: None)
  Receive Date: 20120611
  Receipt Date: 20120604
  Transmission Date: 20120825
  Serious: Yes (Hospitalization)
  Sender: FDA-Public Use
  Company Number: JP-BRISTOL-MYERS SQUIBB COMPANY-16027385

PATIENT
  Age: 62 Year
  Sex: Female
  Weight: 54 kg

DRUGS (6)
  1. RISEDRONATE SODIUM [Concomitant]
     Indication: OSTEOPOROSIS
  2. ORENCIA [Suspect]
     Indication: RHEUMATOID ARTHRITIS
     Dosage: THERAPY DATES:14JUN11,28JUN11,26JUL11
     Route: 041
     Dates: start: 20110531, end: 20110726
  3. PREDNISOLONE [Concomitant]
     Indication: RHEUMATOID ARTHRITIS
  4. LANSOPRAZOLE [Concomitant]
  5. GASMOTIN [Concomitant]
     Indication: GASTROINTESTINAL DISORDER
  6. NEORAL [Concomitant]
     Indication: RHEUMATOID ARTHRITIS

REACTIONS (2)
  - GASTROINTESTINAL DISORDER [None]
  - BRONCHOPNEUMONIA [None]
